FAERS Safety Report 20630743 (Version 3)
Quarter: 2022Q2

REPORT INFORMATION
  Report Type: Report from Study
  Country: CA (occurrence: CA)
  Receive Date: 20220324
  Receipt Date: 20220406
  Transmission Date: 20220721
  Serious: Yes (Other)
  Sender: FDA-Public Use
  Company Number: CA-JNJFOC-20220339244

PATIENT
  Age: 16 Year
  Sex: Female
  Weight: 77 kg

DRUGS (2)
  1. REMICADE [Suspect]
     Active Substance: INFLIXIMAB
     Indication: Juvenile idiopathic arthritis
     Route: 042
     Dates: start: 20220207
  2. REMICADE [Suspect]
     Active Substance: INFLIXIMAB
     Dosage: PATIENT MISSED REINDUCTION DOSE OF  2ND INFUSION WEEK 2, (SHE FINALLY HAD HER INFUSION WEEK 5), INFU
     Route: 042
     Dates: start: 2022

REACTIONS (6)
  - Infusion related reaction [Recovered/Resolved]
  - Panic reaction [Recovered/Resolved]
  - Somnolence [Unknown]
  - Incorrect product administration duration [Unknown]
  - Off label use [Unknown]
  - Inappropriate schedule of product administration [Unknown]

NARRATIVE: CASE EVENT DATE: 20220101
